FAERS Safety Report 4416798-2 (Version None)
Quarter: 2004Q3

REPORT INFORMATION
  Report Type: 
  Country: None (occurrence: None)
  Receive Date: 20040802
  Receipt Date: 20040720
  Transmission Date: 20050211
  Serious: Yes (Hospitalization)
  Sender: FDA-Public Use
  Company Number: CEL-2004-00755-ROC

PATIENT
  Age: 40 Year
  Sex: Male

DRUGS (1)
  1. DIPENTUM [Suspect]
     Indication: IRRITABLE BOWEL SYNDROME
     Dosage: 0.5GMS TWICE DAILY, PO
     Route: 048
     Dates: start: 20040406, end: 20040423

REACTIONS (4)
  - COLITIS ULCERATIVE [None]
  - HAEMORRHAGE [None]
  - IRRITABLE BOWEL SYNDROME [None]
  - PAIN [None]
